FAERS Safety Report 14663071 (Version 1)
Quarter: 2018Q1

REPORT INFORMATION
  Report Type: Spontaneous
  Country: FR (occurrence: FR)
  Receive Date: 20180321
  Receipt Date: 20180321
  Transmission Date: 20180509
  Serious: Yes (Other)
  Sender: FDA-Public Use
  Company Number: FR-MERCK KGAA-2044198

PATIENT
  Age: 84 Year
  Sex: Female

DRUGS (4)
  1. NOVOTHYROX [Suspect]
     Active Substance: LEVOTHYROXINE SODIUM
     Indication: HYPOTHYROIDISM
     Route: 048
     Dates: start: 2017, end: 201711
  2. UN ALFA [Concomitant]
     Active Substance: ALFACALCIDOL
  3. OROCAL (CALCIUM CARBONATE\CHOLECALCIFEROL) [Concomitant]
     Active Substance: CALCIUM CARBONATE\CHOLECALCIFEROL
  4. SEROPRAM (CITALOPRAM HYDROBROMIDE) [Concomitant]
     Active Substance: CITALOPRAM HYDROBROMIDE

REACTIONS (7)
  - Insomnia [Recovered/Resolved]
  - Pain in extremity [Recovered/Resolved]
  - Fatigue [Recovered/Resolved]
  - Blood thyroid stimulating hormone normal [Unknown]
  - Nervousness [Recovered/Resolved]
  - Major depression [Recovered/Resolved]
  - Anxiety [Recovered/Resolved]

NARRATIVE: CASE EVENT DATE: 2017
